FAERS Safety Report 7414490-3 (Version None)
Quarter: 2011Q2

REPORT INFORMATION
  Report Type: 
  Country: None (occurrence: None)
  Receive Date: 20110411
  Receipt Date: 20110411
  Transmission Date: 20111010
  Serious: Yes (Hospitalization)
  Sender: FDA-Public Use
  Company Number: None

PATIENT
  Age: 53 Year
  Sex: Female
  Weight: 70.8 kg

DRUGS (2)
  1. ENOXAPARIN [Suspect]
     Dosage: 60MG BID SQ
     Route: 058
     Dates: start: 20101004, end: 20101017
  2. WARFARIN SODIUM [Suspect]
     Indication: DEEP VEIN THROMBOSIS
     Dosage: 7.5 MG EVERY DAY PO
     Route: 048
     Dates: start: 20101001, end: 20101017

REACTIONS (3)
  - GROIN PAIN [None]
  - CATHETER SITE PAIN [None]
  - CATHETER SITE HAEMATOMA [None]
